FAERS Safety Report 6391352 (Version 2)
Quarter: 2014Q1

REPORT INFORMATION
  Report Type: Spontaneous
  Country: US (occurrence: None)
  Receive Date: 20070703
  Receipt Date: 20140228
  Transmission Date: 20141002
  Serious: Yes (Other)
  Sender: FDA-Public Use
  Company Number: US-JNJFOC-20070502193

PATIENT
  Age: 18 Year
  Sex: Female
  Weight: 70.31 kg

DRUGS (1)
  1. MOTRIN IB [Suspect]
     Indication: HEADACHE
     Dosage: 400 MG, 1 IN 1 TOTAL
     Dates: start: 20070506, end: 20070506

REACTIONS (2)
  - Lip swelling [None]
  - Nasal oedema [None]
